FAERS Safety Report 11569832 (Version 2)
Quarter: 2015Q4

REPORT INFORMATION
  Report Type: Spontaneous
  Country: CN (occurrence: CN)
  Receive Date: 20150929
  Receipt Date: 20151009
  Transmission Date: 20160304
  Serious: Yes (Other)
  Sender: FDA-Public Use
  Company Number: CN-BAYER-2015-425264

PATIENT
  Sex: Female

DRUGS (1)
  1. AVELOX [Suspect]
     Active Substance: MOXIFLOXACIN HYDROCHLORIDE
     Indication: UTERINE INFLAMMATION
     Dosage: UNK
     Dates: start: 20150915

REACTIONS (3)
  - Microalbuminuria [None]
  - Off label use [None]
  - Heart rate increased [None]

NARRATIVE: CASE EVENT DATE: 20150915
